FAERS Safety Report 4560590-5 (Version None)
Quarter: 2005Q1

REPORT INFORMATION
  Report Type: 
  Country: None (occurrence: None)
  Receive Date: 20050125
  Receipt Date: 20041130
  Transmission Date: 20050727
  Serious: Yes (Death, Hospitalization)
  Sender: FDA-Public Use
  Company Number: US-MERCK-0412USA00031

PATIENT
  Age: 79 Year
  Sex: Female

DRUGS (7)
  1. ZETIA [Suspect]
     Indication: BLOOD CHOLESTEROL INCREASED
     Route: 048
     Dates: end: 20041129
  2. AMIODARONE [Suspect]
     Route: 065
     Dates: end: 20041129
  3. AMIODARONE [Suspect]
     Route: 065
     Dates: start: 20041129, end: 20040101
  4. TYLENOL (CAPLET) [Suspect]
     Route: 065
     Dates: end: 20041129
  5. DARVOCET-N 100 [Concomitant]
     Route: 065
     Dates: end: 20041129
  6. LEVOXYL [Concomitant]
     Indication: HYPOTHYROIDISM
     Route: 065
     Dates: end: 20041129
  7. COUMADIN [Concomitant]
     Indication: ATRIAL FIBRILLATION
     Route: 065
     Dates: end: 20041129

REACTIONS (9)
  - ABDOMINAL DISTENSION [None]
  - ASCITES [None]
  - DIALYSIS [None]
  - DRUG TOXICITY [None]
  - FIBROSIS [None]
  - HEPATIC FAILURE [None]
  - HEPATORENAL SYNDROME [None]
  - INTERNATIONAL NORMALISED RATIO INCREASED [None]
  - RENAL FAILURE [None]
